FAERS Safety Report 8556369-X (Version None)
Quarter: 2012Q3

REPORT INFORMATION
  Report Type: 
  Country: None (occurrence: None)
  Receive Date: 20120801
  Receipt Date: 20120731
  Transmission Date: 20120928
  Serious: Yes (Hospitalization, Other)
  Sender: FDA-Public Use
  Company Number: US-JNJFOC-20120703213

PATIENT
  Age: 34 Year
  Sex: Male

DRUGS (28)
  1. ALPRAZOLAM [Suspect]
     Indication: PRODUCT USED FOR UNKNOWN INDICATION
     Route: 048
  2. FLUCONAZOLE [Interacting]
     Route: 048
  3. FLUCONAZOLE [Interacting]
     Route: 048
  4. FLUCONAZOLE [Interacting]
     Route: 048
  5. FLUCONAZOLE [Suspect]
     Route: 042
  6. ACETAMINOPHEN/HYDROCODONE BITARTRATE [Suspect]
     Indication: PRODUCT USED FOR UNKNOWN INDICATION
     Dosage: 500/7.5 MG DAILY AS NEEDED
     Route: 048
  7. VALGANCICLOVIR [Suspect]
     Indication: CYTOMEGALOVIRUS CHORIORETINITIS
     Route: 048
  8. FLUCONAZOLE [Interacting]
     Route: 048
  9. FAMOTIDINE [Suspect]
     Indication: PRODUCT USED FOR UNKNOWN INDICATION
     Route: 048
  10. RIFABUTIN [Interacting]
     Route: 048
  11. ATAZANAVIR [Suspect]
     Indication: PRODUCT USED FOR UNKNOWN INDICATION
     Route: 048
  12. FILGRASTIM [Suspect]
     Indication: MYCOBACTERIUM AVIUM COMPLEX INFECTION
     Route: 058
  13. FLUCONAZOLE [Interacting]
     Indication: OROPHARYNGEAL CANDIDIASIS
     Route: 048
  14. FLUCONAZOLE [Interacting]
     Route: 048
  15. FLUCONAZOLE [Suspect]
     Route: 042
  16. EMTRICITABINE AND TENOFOVIR DISOPROXIL FUMARATE [Suspect]
     Indication: PRODUCT USED FOR UNKNOWN INDICATION
     Dosage: 200/300 MG DAILY
     Route: 048
  17. ETHAMBUTOL HYDROCHLORIDE [Suspect]
     Indication: PRODUCT USED FOR UNKNOWN INDICATION
     Route: 048
  18. MOXIFLOXACIN [Suspect]
     Indication: PRODUCT USED FOR UNKNOWN INDICATION
     Route: 048
  19. FLUCONAZOLE [Interacting]
     Route: 048
  20. RITONAVIR [Suspect]
     Indication: PRODUCT USED FOR UNKNOWN INDICATION
     Route: 048
  21. FLUCONAZOLE [Interacting]
     Indication: ACQUIRED IMMUNODEFICIENCY SYNDROME
     Route: 048
  22. FLUCONAZOLE [Interacting]
     Route: 048
  23. FAMOTIDINE [Suspect]
     Route: 048
  24. VALGANCICLOVIR [Suspect]
     Route: 048
  25. CHOLECALCIFEROL [Suspect]
     Indication: PRODUCT USED FOR UNKNOWN INDICATION
     Route: 048
  26. FLUCONAZOLE [Interacting]
     Route: 048
  27. RIFABUTIN [Interacting]
     Indication: PRODUCT USED FOR UNKNOWN INDICATION
     Route: 048
  28. AZITHROMYCIN [Suspect]
     Indication: PRODUCT USED FOR UNKNOWN INDICATION
     Route: 048

REACTIONS (3)
  - DRUG INTERACTION [None]
  - OROPHARYNGEAL CANDIDIASIS [None]
  - THROMBOCYTOPENIA [None]
